FAERS Safety Report 7394652-4 (Version None)
Quarter: 2011Q2

REPORT INFORMATION
  Report Type: 
  Country: None (occurrence: None)
  Receive Date: 20110405
  Receipt Date: 20101021
  Transmission Date: 20111010
  Serious: Yes (Hospitalization, Other)
  Sender: FDA-Public Use
  Company Number: US-BAYER-200935876NA

PATIENT
  Sex: Female
  Weight: 109.9 kg

DRUGS (18)
  1. UNCODEABLE ^UNCLASSIFIABLE^ [Concomitant]
     Indication: NERVE COMPRESSION
     Dates: start: 20050101, end: 20060101
  2. GABAPENTIN [Concomitant]
     Indication: MIGRAINE
     Dates: start: 20080101, end: 20100101
  3. AMITRIPTYLINE [Concomitant]
     Indication: MIGRAINE
     Dates: start: 20080101, end: 20100101
  4. OXYCODONE [Concomitant]
  5. DEPO-PROVERA [Concomitant]
  6. IMITREX [Concomitant]
     Dates: start: 20020101
  7. UNCODEABLE ^UNCLASSIFIABLE^ [Concomitant]
     Indication: BACK PAIN
  8. NSAID'S [Concomitant]
     Dates: start: 20070101
  9. CELEXA [Concomitant]
     Indication: DEPRESSION
     Dates: start: 20090101
  10. NEXIUM [Concomitant]
     Indication: ULCER
     Dates: start: 20090101
  11. TRAZODONE HCL [Concomitant]
     Indication: INSOMNIA
     Dates: start: 20090101
  12. MEDROXYPROGESTERONE [Concomitant]
  13. TRAMADOL HCL [Concomitant]
  14. YAZ [Suspect]
     Indication: PREMENSTRUAL SYNDROME
     Route: 048
     Dates: start: 20070201, end: 20070501
  15. UNCODEABLE ^UNCLASSIFIABLE^ [Concomitant]
     Indication: PAIN
     Dates: start: 20090101
  16. YASMIN [Suspect]
     Indication: PREMENSTRUAL SYNDROME
     Route: 048
     Dates: start: 20070201, end: 20070501
  17. ALBUTEROL [Concomitant]
  18. PROMETHAZINE [Concomitant]

REACTIONS (4)
  - CHOLECYSTECTOMY [None]
  - CHOLECYSTITIS CHRONIC [None]
  - CHOLELITHIASIS [None]
  - GALLBLADDER CHOLESTEROLOSIS [None]
